FAERS Safety Report 8101762-2 (Version None)
Quarter: 2012Q1

REPORT INFORMATION
  Report Type: 
  Country: None (occurrence: None)
  Receive Date: 20120131
  Receipt Date: 20120123
  Transmission Date: 20120608
  Serious: Yes (Other)
  Sender: FDA-Public Use
  Company Number: PHHY2012BR006995

PATIENT
  Age: 4 Year
  Sex: Male

DRUGS (2)
  1. TRILEPTAL [Suspect]
     Indication: PARTIAL SEIZURES
     Dosage: 2 ML, BID
     Route: 048
     Dates: start: 20120119
  2. TRILEPTAL [Suspect]
     Dosage: 3.5 ML, BID
     Route: 048

REACTIONS (4)
  - MALAISE [None]
  - AGITATION [None]
  - SHOCK [None]
  - CONVULSION [None]
